FAERS Safety Report 12884124 (Version 5)
Quarter: 2017Q3

REPORT INFORMATION
  Report Type: Spontaneous
  Country: US (occurrence: US)
  Receive Date: 20161026
  Receipt Date: 20170705
  Transmission Date: 20171127
  Serious: No
  Sender: FDA-Public Use
  Company Number: US-PFIZER INC-2016495347

PATIENT
  Age: 65 Year
  Sex: Female
  Weight: 104.3 kg

DRUGS (1)
  1. XELJANZ XR [Suspect]
     Active Substance: TOFACITINIB CITRATE
     Indication: RHEUMATOID ARTHRITIS
     Dosage: 11 MG, DAILY
     Route: 048

REACTIONS (5)
  - Rash [Unknown]
  - Acne [Unknown]
  - Dyspnoea [Unknown]
  - Blood test abnormal [Unknown]
  - Vomiting [Unknown]
